FAERS Safety Report 4852568-9 (Version None)
Quarter: 2005Q4

REPORT INFORMATION
  Report Type: 
  Country: None (occurrence: None)
  Receive Date: 20051123
  Receipt Date: 20050215
  Transmission Date: 20060501
  Serious: No
  Sender: FDA-Public Use
  Company Number: 05USA0058

PATIENT
  Age: 40 Year
  Sex: Female
  Weight: 98 kg

DRUGS (7)
  1. GLIADEL [Suspect]
     Indication: GLIOBLASTOMA MULTIFORME
     Dosage: 7.7MG/WAFER-MAX OF 8
     Dates: start: 20050105
  2. O6-BENZYLGUANINE (ANTINEOPLASTIC AGENTS) (INJECTION FOR INFUSION) [Suspect]
     Indication: GLIOBLASTOMA MULTIFORME
     Dosage: 30 MG/M2 INFUSION X 5 DAYS; 102MG/M2 BOLUS EVERY 48 HOURS
     Route: 040
     Dates: start: 20050105, end: 20050110
  3. DILANTIN [Concomitant]
  4. ASACOL [Concomitant]
  5. DECADRON [Concomitant]
  6. IMODIUM (LOPERAMIDE HYRDROCHLORIDE) [Concomitant]
  7. PROTONIX [Concomitant]

REACTIONS (1)
  - INTRACRANIAL HYPOTENSION [None]
